FAERS Safety Report 10624510 (Version 2)
Quarter: 2015Q4

REPORT INFORMATION
  Report Type: Spontaneous
  Country: US (occurrence: US)
  Receive Date: 20141203
  Receipt Date: 20151201
  Transmission Date: 20160304
  Serious: No
  Sender: FDA-Public Use
  Company Number: US-SA-2014SA128276

PATIENT
  Age: 50 Year
  Sex: Male
  Weight: 85.4 kg

DRUGS (21)
  1. CATAPRES [Concomitant]
     Active Substance: CLONIDINE HYDROCHLORIDE
     Route: 048
     Dates: start: 20140611
  2. TYLENOL [Concomitant]
     Active Substance: ACETAMINOPHEN
     Indication: PYREXIA
     Route: 048
     Dates: start: 20140610
  3. RENVELA [Suspect]
     Active Substance: SEVELAMER CARBONATE
     Indication: HYPERPHOSPHATAEMIA
     Dosage: POWDER FORM
     Route: 065
     Dates: start: 20140926
  4. TYLENOL [Concomitant]
     Active Substance: ACETAMINOPHEN
     Indication: PAIN
     Route: 048
     Dates: start: 20140610
  5. SODIUM BICARBONATE. [Concomitant]
     Active Substance: SODIUM BICARBONATE
     Route: 048
     Dates: start: 20140615
  6. ZOFRAN [Concomitant]
     Active Substance: ONDANSETRON HYDROCHLORIDE
     Indication: VOMITING
     Dosage: 4 MG EVERY 6 HOURS WHEN NEEDED
     Route: 042
     Dates: start: 20140613
  7. PROCRIT [Concomitant]
     Active Substance: ERYTHROPOIETIN
     Dosage: EVERY TUESDAY, THURSDAY AND SATURDAY DOSE:10000 UNIT(S)
     Route: 058
     Dates: start: 20140612
  8. EPOGEN [Concomitant]
     Active Substance: ERYTHROPOIETIN
     Dosage: EVERY TUESDAY, THURSDAY AND SATURDAY DOSE:10000 UNIT(S)
     Route: 058
     Dates: start: 20140612
  9. TRANDATE [Concomitant]
     Active Substance: LABETALOL HYDROCHLORIDE
     Indication: BLOOD PRESSURE MEASUREMENT
     Route: 042
     Dates: start: 20140610
  10. HEPARIN [Concomitant]
     Active Substance: HEPARIN SODIUM
     Dosage: DOSE:9000 UNIT(S)
     Dates: start: 20140615, end: 20140615
  11. MORPHINE [Concomitant]
     Active Substance: MORPHINE
     Indication: PAIN
     Dosage: 4 MG EVERY 1 HOUR WHEN NEEDED
     Route: 042
     Dates: start: 20140613
  12. PROTONIX [Concomitant]
     Active Substance: PANTOPRAZOLE SODIUM
     Dosage: AFTER BREAKFAST
     Route: 048
     Dates: start: 20140612, end: 20140612
  13. RENVELA [Suspect]
     Active Substance: SEVELAMER CARBONATE
     Indication: HYPERPHOSPHATAEMIA
     Dosage: RENVELA 800 MG / 3 TABLETS WITH MEALS
     Route: 048
     Dates: start: 20140701, end: 20141021
  14. KEFLEX [Concomitant]
     Active Substance: CEPHALEXIN
     Route: 048
     Dates: start: 20140615, end: 20140618
  15. ZOFRAN [Concomitant]
     Active Substance: ONDANSETRON HYDROCHLORIDE
     Indication: NAUSEA
     Dosage: 4 MG EVERY 6 HOURS WHEN NEEDED
     Route: 042
     Dates: start: 20140613
  16. TRANDATE [Concomitant]
     Active Substance: LABETALOL HYDROCHLORIDE
     Indication: BLOOD PRESSURE MEASUREMENT
     Route: 048
     Dates: start: 20140611
  17. NORCO [Concomitant]
     Active Substance: ACETAMINOPHEN\HYDROCODONE BITARTRATE
     Indication: PAIN
     Dosage: 2 TABLETS EVERY 6 HOURS
     Route: 048
     Dates: start: 20140613
  18. COLACE [Concomitant]
     Active Substance: DOCUSATE SODIUM
     Route: 048
     Dates: start: 20140612
  19. RENAGEL [Concomitant]
     Active Substance: SEVELAMER HYDROCHLORIDE
     Dosage: WITH MEALS
     Route: 048
     Dates: start: 20140612, end: 201407
  20. NORVASC [Concomitant]
     Active Substance: AMLODIPINE BESYLATE
     Route: 048
     Dates: start: 20140611
  21. PNEUMOVAX 23 [Concomitant]
     Active Substance: PNEUMOCOCCAL VACCINE, POLYVALENT 23
     Dosage: PRIOR TO DISCHARGE
     Route: 030
     Dates: start: 20140610

REACTIONS (1)
  - Pruritus [Unknown]

NARRATIVE: CASE EVENT DATE: 2014
